FAERS Safety Report 6082992-0 (Version None)
Quarter: 2009Q1

REPORT INFORMATION
  Report Type: 
  Country: None (occurrence: None)
  Receive Date: 20090218
  Receipt Date: 20090203
  Transmission Date: 20090719
  Serious: Yes (Other)
  Sender: FDA-Public Use
  Company Number: DE-B.I. PHARMACEUTICALS,INC./RIDGEFIELD-2009-DE-01469BY

PATIENT
  Sex: Female

DRUGS (7)
  1. KINZALMONO [Suspect]
     Indication: HYPERTENSION
     Dosage: DAILY DOSE: 1 DF
     Route: 048
     Dates: start: 20080826, end: 20081126
  2. RASILEZ [Suspect]
     Indication: HYPERTENSION
     Dosage: NI
     Route: 065
     Dates: start: 20080829, end: 20080901
  3. CARMEN [Suspect]
     Dosage: 1 DF
     Route: 065
     Dates: start: 20080829, end: 20081126
  4. PRAVASTATIN [Suspect]
     Indication: HYPERLIPIDAEMIA
     Dosage: NI
     Route: 065
     Dates: start: 20080829, end: 20081126
  5. BISOHEXAL [Concomitant]
  6. EZETIMIBE [Concomitant]
  7. VOTUM [Concomitant]

REACTIONS (7)
  - ALVEOLITIS [None]
  - BRONCHOALVEOLAR LAVAGE ABNORMAL [None]
  - COUGH [None]
  - DYSPNOEA [None]
  - LEUKOCYTOSIS [None]
  - LUNG INFILTRATION [None]
  - RED BLOOD CELL SEDIMENTATION RATE INCREASED [None]
